FAERS Safety Report 22360778 (Version 1)
Quarter: 2023Q2

REPORT INFORMATION
  Report Type: Spontaneous
  Country: PR (occurrence: PR)
  Receive Date: 20230524
  Receipt Date: 20230524
  Transmission Date: 20230721
  Serious: Yes (Other)
  Sender: FDA-Public Use
  Company Number: PR-AMERICAN REGENT INC-2023001197

PATIENT
  Age: 76 Year
  Sex: Female
  Weight: 43.5 kg

DRUGS (3)
  1. VENOFER [Suspect]
     Active Substance: IRON SUCROSE
     Indication: Product used for unknown indication
     Dosage: UNK
     Route: 042
     Dates: start: 20230214, end: 20230214
  2. MIRCERA [Suspect]
     Active Substance: METHOXY POLYETHYLENE GLYCOL-EPOETIN BETA
     Indication: Nephrogenic anaemia
     Dosage: 100 MICROGRAMS EVERY 2 WEEKS
     Dates: start: 20230207
  3. MIRCERA [Suspect]
     Active Substance: METHOXY POLYETHYLENE GLYCOL-EPOETIN BETA
     Dosage: 100 MCG, EVERY 2 WEEKS; 5TH (^INCREASED DOSE^), DOSE NUMBER AND DOSE CATEGORY: 5
     Dates: start: 20230408, end: 20230408

REACTIONS (2)
  - Drug hypersensitivity [Recovered/Resolved]
  - Hypotension [Recovered/Resolved]

NARRATIVE: CASE EVENT DATE: 20230408
